FAERS Safety Report 4562666-5 (Version None)
Quarter: 2005Q1

REPORT INFORMATION
  Report Type: 
  Country: None (occurrence: None)
  Receive Date: 20050124
  Receipt Date: 20050117
  Transmission Date: 20050727
  Serious: Yes (Hospitalization)
  Sender: FDA-Public Use
  Company Number: 2005013850

PATIENT
  Age: 69 Year
  Sex: Female
  Weight: 42 kg

DRUGS (5)
  1. TAHOR (ATORVASTATIN) [Suspect]
     Indication: HYPERCHOLESTEROLAEMIA
     Dosage: (UNKNOWN), ORAL
     Route: 048
  2. COLCHICINE (COLCHICINE) [Suspect]
     Indication: ILL-DEFINED DISORDER
     Dosage: 1 MG (1 IN 1 D), ORAL
     Route: 048
  3. CALCITRIOL [Suspect]
     Indication: ILL-DEFINED DISORDER
     Dosage: (UNKNOWN), ORAL
     Route: 048
  4. ACETYLSALICYLATE LYSINE (ACETYLSALICYLCATE LYSINE) [Suspect]
     Indication: ILL-DEFINED DISORDER
     Dosage: 160 MG (160 MG, 1 IN 1 D), ORAL
     Route: 048
  5. DILTIAZEM [Suspect]
     Indication: ILL-DEFINED DISORDER
     Dosage: 120 MG (60 MG, 1 IN 2 D), ORAL
     Route: 048

REACTIONS (1)
  - TENDON RUPTURE [None]
